FAERS Safety Report 11517244 (Version 2)
Quarter: 2015Q4

REPORT INFORMATION
  Report Type: Spontaneous
  Country: GB (occurrence: GB)
  Receive Date: 20150917
  Receipt Date: 20151001
  Transmission Date: 20160304
  Serious: Yes (Hospitalization, Other)
  Sender: FDA-Public Use
  Company Number: GB-PFIZER INC-2015297809

PATIENT
  Age: 52 Year
  Sex: Male
  Weight: 66 kg

DRUGS (13)
  1. CISPLATIN. [Suspect]
     Active Substance: CISPLATIN
     Indication: OESOPHAGEAL CARCINOMA
     Dosage: 610 MG, DATE OF LAST DOSE PRIOR TO SAE: 15APR2013
     Route: 042
     Dates: start: 20120830
  2. CYCLIZINE [Concomitant]
     Active Substance: CYCLIZINE
     Dosage: 150 MILLIGRAM DAILY
     Route: 048
  3. CO-AMOXICLAV /00756801/ [Concomitant]
     Active Substance: AMOXICILLIN\CLAVULANIC ACID
     Dosage: 1875 MILLIGRAM DAILY
     Route: 048
  4. LANSOPRAZOLE. [Concomitant]
     Active Substance: LANSOPRAZOLE
     Dosage: 30 MG, 1X/DAY
     Route: 048
  5. SANDO K /00209301/ [Concomitant]
     Dosage: UNK 2 TAB 3 TIMES DAILY
     Route: 048
  6. SENNA /00142201/ [Concomitant]
     Active Substance: SENNA LEAF
     Dosage: 2 TAB.
     Route: 048
  7. MORPHINE SULPHATE [Concomitant]
     Active Substance: MORPHINE SULFATE
     Dosage: 5 - 10 MG, ONCE EVERY 4 HOURS
     Route: 048
  8. XELODA [Suspect]
     Active Substance: CAPECITABINE
     Indication: OESOPHAGEAL CARCINOMA
     Dosage: 52500 MG, UNK
     Route: 048
     Dates: start: 20120830, end: 20130415
  9. EPIRUBICIN HCL [Suspect]
     Active Substance: EPIRUBICIN HYDROCHLORIDE
     Indication: OESOPHAGEAL CARCINOMA
     Dosage: 50 MG, DATE OF LAST DOSE PRIOR TO SAE: 15APR2013
     Route: 042
     Dates: start: 20120830
  10. AVASTIN [Suspect]
     Active Substance: BEVACIZUMAB
     Indication: OESOPHAGEAL CARCINOMA
     Dosage: 550 MG, DATE OF LAST DOSE PRIOR TO SAE: 15APR2013
     Route: 042
     Dates: start: 20120830
  11. FENTANYL. [Concomitant]
     Active Substance: FENTANYL
     Dosage: UNK 25 MICROGRAM/HR.
     Route: 061
  12. LOPERAMIDE HYDROCHLORIDE. [Concomitant]
     Active Substance: LOPERAMIDE HYDROCHLORIDE
     Dosage: 2 MG, ONCE EVERY 6 HOURS
     Route: 048
  13. PARACETAMOL [Concomitant]
     Active Substance: ACETAMINOPHEN
     Dosage: 1 G, ONCE EVERY 4 HOURS
     Route: 048

REACTIONS (5)
  - Dyspnoea [Unknown]
  - Neutropenic sepsis [Not Recovered/Not Resolved]
  - Pyrexia [Unknown]
  - Hallucination [Unknown]
  - Diarrhoea [Unknown]

NARRATIVE: CASE EVENT DATE: 20130306
